FAERS Safety Report 23314252 (Version 1)
Quarter: 2023Q4

REPORT INFORMATION
  Report Type: Spontaneous
  Country: US (occurrence: None)
  Receive Date: 20231219
  Receipt Date: 20231219
  Transmission Date: 20240110
  Serious: Yes (Life-Threatening, Hospitalization)
  Sender: FDA-Public Use
  Company Number: None

PATIENT
  Age: 23 Year
  Sex: Female
  Weight: 49.5 kg

DRUGS (3)
  1. NEXTSTELLIS [Suspect]
     Active Substance: DROSPIRENONE\ESTETROL MONOHYDRATE
     Indication: Contraception
     Dosage: 28 TABLETS AT BETIME ORAL?
     Route: 048
     Dates: start: 20231007, end: 20231112
  2. KEPPRA [Concomitant]
     Active Substance: LEVETIRACETAM
  3. LEXAPRO [Concomitant]

REACTIONS (6)
  - Seizure [None]
  - Malaise [None]
  - Headache [None]
  - Migraine [None]
  - Influenza like illness [None]
  - Medical induction of coma [None]

NARRATIVE: CASE EVENT DATE: 20231117
